FAERS Safety Report 6893944-2 (Version None)
Quarter: 2010Q3

REPORT INFORMATION
  Report Type: 
  Country: None (occurrence: None)
  Receive Date: 20100802
  Receipt Date: 20100720
  Transmission Date: 20110219
  Serious: No
  Sender: FDA-Public Use
  Company Number: US-BIOGENIDEC-2010BI024462

PATIENT
  Age: 50 Year
  Sex: Female

DRUGS (6)
  1. AVONEX [Suspect]
     Indication: MULTIPLE SCLEROSIS
     Route: 030
     Dates: start: 20081016, end: 20081016
  2. AVONEX [Suspect]
     Route: 030
     Dates: start: 20091016, end: 20100101
  3. AVONEX [Suspect]
     Route: 030
     Dates: start: 20100601, end: 20100701
  4. AVONEX [Suspect]
     Route: 030
     Dates: start: 20100719
  5. NEURONTIN [Concomitant]
     Indication: HEADACHE
     Route: 048
     Dates: start: 20000101
  6. TOPAMAX [Concomitant]
     Indication: HEADACHE
     Route: 048
     Dates: start: 20000101

REACTIONS (10)
  - AMNESIA [None]
  - CHILLS [None]
  - CONCUSSION [None]
  - EYE HAEMORRHAGE [None]
  - FACIAL PAIN [None]
  - FALL [None]
  - FEELING ABNORMAL [None]
  - HEADACHE [None]
  - LOSS OF CONSCIOUSNESS [None]
  - PYREXIA [None]
